FAERS Safety Report 5415644-8 (Version None)
Quarter: 2007Q3

REPORT INFORMATION
  Report Type: 
  Country: None (occurrence: None)
  Receive Date: 20070815
  Receipt Date: 20070808
  Transmission Date: 20080115
  Serious: Yes (Other)
  Sender: FDA-Public Use
  Company Number: GB-JNJFOC-20070802645

PATIENT
  Age: 27 Year
  Sex: Male

DRUGS (4)
  1. RISPERDAL [Suspect]
     Indication: PSYCHOTIC DISORDER
     Route: 048
  2. LOSEC [Concomitant]
     Indication: DRUG USE FOR UNKNOWN INDICATION
  3. RENNIE [Concomitant]
     Indication: DRUG USE FOR UNKNOWN INDICATION
  4. GAVISCON [Concomitant]
     Indication: DRUG USE FOR UNKNOWN INDICATION

REACTIONS (1)
  - GASTRIC ULCER [None]
